FAERS Safety Report 25640377 (Version 1)
Quarter: 2025Q3

REPORT INFORMATION
  Report Type: Spontaneous
  Country: EU (occurrence: EU)
  Receive Date: 20250804
  Receipt Date: 20250804
  Transmission Date: 20251020
  Serious: Yes (Death, Hospitalization)
  Sender: MYLAN
  Company Number: None

PATIENT
  Age: 90 Year
  Sex: Female

DRUGS (44)
  1. VERAPAMIL [4]
     Active Substance: VERAPAMIL HYDROCHLORIDE
     Indication: Product used for unknown indication
  2. VERAPAMIL [4]
     Active Substance: VERAPAMIL HYDROCHLORIDE
     Route: 065
  3. VERAPAMIL [4]
     Active Substance: VERAPAMIL HYDROCHLORIDE
     Route: 065
  4. VERAPAMIL [4]
     Active Substance: VERAPAMIL HYDROCHLORIDE
  5. DULOXETINE [4]
     Active Substance: DULOXETINE
     Indication: Product used for unknown indication
  6. DULOXETINE [4]
     Active Substance: DULOXETINE
     Route: 065
  7. DULOXETINE [4]
     Active Substance: DULOXETINE
     Route: 065
  8. DULOXETINE [4]
     Active Substance: DULOXETINE
  9. BISOPROLOL [Suspect]
     Active Substance: BISOPROLOL
     Indication: Product used for unknown indication
     Dates: start: 20250605, end: 20250605
  10. BISOPROLOL [Suspect]
     Active Substance: BISOPROLOL
     Route: 048
     Dates: start: 20250605, end: 20250605
  11. BISOPROLOL [Suspect]
     Active Substance: BISOPROLOL
     Route: 048
     Dates: start: 20250605, end: 20250605
  12. BISOPROLOL [Suspect]
     Active Substance: BISOPROLOL
     Dates: start: 20250605, end: 20250605
  13. LERCANIDIPINE HYDROCHLORIDE [Suspect]
     Active Substance: LERCANIDIPINE HYDROCHLORIDE
     Indication: Product used for unknown indication
     Dates: start: 20250605, end: 20250605
  14. LERCANIDIPINE HYDROCHLORIDE [Suspect]
     Active Substance: LERCANIDIPINE HYDROCHLORIDE
     Route: 048
     Dates: start: 20250605, end: 20250605
  15. LERCANIDIPINE HYDROCHLORIDE [Suspect]
     Active Substance: LERCANIDIPINE HYDROCHLORIDE
     Route: 048
     Dates: start: 20250605, end: 20250605
  16. LERCANIDIPINE HYDROCHLORIDE [Suspect]
     Active Substance: LERCANIDIPINE HYDROCHLORIDE
     Dates: start: 20250605, end: 20250605
  17. LEVOTHYROXINE SODIUM\LIOTHYRONINE SODIUM [Suspect]
     Active Substance: LEVOTHYROXINE SODIUM\LIOTHYRONINE SODIUM
     Indication: Product used for unknown indication
     Dates: start: 20250605, end: 20250605
  18. LEVOTHYROXINE SODIUM\LIOTHYRONINE SODIUM [Suspect]
     Active Substance: LEVOTHYROXINE SODIUM\LIOTHYRONINE SODIUM
     Route: 048
     Dates: start: 20250605, end: 20250605
  19. LEVOTHYROXINE SODIUM\LIOTHYRONINE SODIUM [Suspect]
     Active Substance: LEVOTHYROXINE SODIUM\LIOTHYRONINE SODIUM
     Route: 048
     Dates: start: 20250605, end: 20250605
  20. LEVOTHYROXINE SODIUM\LIOTHYRONINE SODIUM [Suspect]
     Active Substance: LEVOTHYROXINE SODIUM\LIOTHYRONINE SODIUM
     Dates: start: 20250605, end: 20250605
  21. HYDROCHLOROTHIAZIDE [Suspect]
     Active Substance: HYDROCHLOROTHIAZIDE
     Indication: Product used for unknown indication
     Dates: start: 20250605, end: 20250605
  22. HYDROCHLOROTHIAZIDE [Suspect]
     Active Substance: HYDROCHLOROTHIAZIDE
     Route: 048
     Dates: start: 20250605, end: 20250605
  23. HYDROCHLOROTHIAZIDE [Suspect]
     Active Substance: HYDROCHLOROTHIAZIDE
     Route: 048
     Dates: start: 20250605, end: 20250605
  24. HYDROCHLOROTHIAZIDE [Suspect]
     Active Substance: HYDROCHLOROTHIAZIDE
     Dates: start: 20250605, end: 20250605
  25. FOSAVANCE [Suspect]
     Active Substance: ALENDRONATE SODIUM\CHOLECALCIFEROL
     Indication: Product used for unknown indication
     Dates: start: 20250605, end: 20250605
  26. FOSAVANCE [Suspect]
     Active Substance: ALENDRONATE SODIUM\CHOLECALCIFEROL
     Route: 048
     Dates: start: 20250605, end: 20250605
  27. FOSAVANCE [Suspect]
     Active Substance: ALENDRONATE SODIUM\CHOLECALCIFEROL
     Route: 048
     Dates: start: 20250605, end: 20250605
  28. FOSAVANCE [Suspect]
     Active Substance: ALENDRONATE SODIUM\CHOLECALCIFEROL
     Dates: start: 20250605, end: 20250605
  29. ELIQUIS [4]
     Active Substance: APIXABAN
     Indication: Product used for unknown indication
  30. ELIQUIS [4]
     Active Substance: APIXABAN
     Route: 065
  31. ELIQUIS [4]
     Active Substance: APIXABAN
     Route: 065
  32. ELIQUIS [4]
     Active Substance: APIXABAN
  33. FUROSEMIDE [4]
     Active Substance: FUROSEMIDE
     Indication: Product used for unknown indication
  34. FUROSEMIDE [4]
     Active Substance: FUROSEMIDE
     Route: 065
  35. FUROSEMIDE [4]
     Active Substance: FUROSEMIDE
     Route: 065
  36. FUROSEMIDE [4]
     Active Substance: FUROSEMIDE
  37. DAPAGLIFLOZIN [4]
     Active Substance: DAPAGLIFLOZIN
     Indication: Product used for unknown indication
  38. DAPAGLIFLOZIN [4]
     Active Substance: DAPAGLIFLOZIN
     Route: 065
  39. DAPAGLIFLOZIN [4]
     Active Substance: DAPAGLIFLOZIN
     Route: 065
  40. DAPAGLIFLOZIN [4]
     Active Substance: DAPAGLIFLOZIN
  41. POTASSIUM CHLORIDE [4]
     Active Substance: POTASSIUM CHLORIDE
     Indication: Product used for unknown indication
  42. POTASSIUM CHLORIDE [4]
     Active Substance: POTASSIUM CHLORIDE
     Route: 065
  43. POTASSIUM CHLORIDE [4]
     Active Substance: POTASSIUM CHLORIDE
     Route: 065
  44. POTASSIUM CHLORIDE [4]
     Active Substance: POTASSIUM CHLORIDE

REACTIONS (4)
  - Acute myocardial infarction [Fatal]
  - Product administration error [Fatal]
  - Wrong patient [Fatal]
  - Wrong product administered [Fatal]

NARRATIVE: CASE EVENT DATE: 20250605
